FAERS Safety Report 12618766 (Version 1)
Quarter: 2016Q3

REPORT INFORMATION
  Report Type: Spontaneous
  Country: US (occurrence: US)
  Receive Date: 20160803
  Receipt Date: 20160803
  Transmission Date: 20161109
  Serious: Yes (Hospitalization)
  Sender: FDA-Public Use
  Company Number: US-PFIZER INC-2016316253

PATIENT
  Age: 79 Year
  Sex: Female
  Weight: 61 kg

DRUGS (2)
  1. TIKOSYN [Suspect]
     Active Substance: DOFETILIDE
     Dosage: ^225 UG^, UNKNOWN FREQUENCY
  2. TIKOSYN [Suspect]
     Active Substance: DOFETILIDE
     Dosage: 125 UG, UNKNOWN FREQUENCY
     Dates: end: 20160320

REACTIONS (1)
  - Arthropathy [Not Recovered/Not Resolved]

NARRATIVE: CASE EVENT DATE: 20160630
